FAERS Safety Report 24740450 (Version 1)
Quarter: 2024Q4

REPORT INFORMATION
  Report Type: Spontaneous
  Country: US (occurrence: US)
  Receive Date: 20241216
  Receipt Date: 20241216
  Transmission Date: 20250115
  Serious: No
  Sender: ENDO
  Company Number: US-ENDO PHARMACEUTICALS INC-2024-001363

PATIENT
  Sex: Male

DRUGS (2)
  1. XIAFLEX [Suspect]
     Active Substance: COLLAGENASE CLOSTRIDIUM HISTOLYTICUM
     Indication: Peyronie^s disease
     Dosage: 0.58 MILLIGRAM, UNKNOWN
     Route: 051
  2. XIAFLEX [Suspect]
     Active Substance: COLLAGENASE CLOSTRIDIUM HISTOLYTICUM
     Dosage: 0.58 MILLIGRAM, UNKNOWN (LAST INJECTION)
     Route: 051

REACTIONS (6)
  - Testicular swelling [Recovered/Resolved]
  - Orchitis noninfective [Recovered/Resolved]
  - Swelling [Recovered/Resolved]
  - Peyronie^s disease [Unknown]
  - Condition aggravated [Unknown]
  - Drug ineffective [Unknown]
